FAERS Safety Report 9222382 (Version 10)
Quarter: 2020Q1

REPORT INFORMATION
  Report Type: Spontaneous
  Country: US (occurrence: US)
  Receive Date: 20130410
  Receipt Date: 20200120
  Transmission Date: 20200409
  Serious: Yes (Disabling, Other)
  Sender: FDA-Public Use
  Company Number: US-009507513-1304USA003856

PATIENT
  Sex: Male
  Weight: 123.81 kg

DRUGS (8)
  1. DEPAKOTE [Concomitant]
     Active Substance: DIVALPROEX SODIUM
     Indication: PAIN
     Dosage: 500MG 3-4 TIMES QD
     Route: 048
  2. AMITRIPTYLINE HYDROCHLORIDE. [Concomitant]
     Active Substance: AMITRIPTYLINE HYDROCHLORIDE
     Indication: HEADACHE
     Dosage: 10 MILLIGRAM, DAILY AT BEDTIME
     Route: 048
  3. DULERA [Concomitant]
     Active Substance: FORMOTEROL FUMARATE DIHYDRATE\MOMETASONE FUROATE
     Dosage: 2 PUFFS, BID
     Route: 055
  4. DARVOCET-N 100 [Concomitant]
     Active Substance: ACETAMINOPHEN\PROPOXYPHENE NAPSYLATE
     Indication: PAIN
     Dosage: 6 OR MORE DAILY
     Route: 048
  5. AMLACTIN [Concomitant]
     Active Substance: AMMONIUM LACTATE
     Dosage: APPLY QD
  6. PROVENTIL [Concomitant]
     Active Substance: ALBUTEROL
     Dosage: 1 NEB Q 4-6 HRS A DAY AS NEEDED
     Route: 055
  7. PROPECIA [Suspect]
     Active Substance: FINASTERIDE
     Indication: ANDROGENETIC ALOPECIA
     Dosage: 1 MG, UNK
     Route: 048
     Dates: start: 2002, end: 200403
  8. VENTOLIN [Concomitant]
     Active Substance: ALBUTEROL SULFATE
     Dosage: 2 PUFFS, BID

REACTIONS (38)
  - Drug ineffective [Unknown]
  - Upper-airway cough syndrome [Not Recovered/Not Resolved]
  - Malnutrition [Not Recovered/Not Resolved]
  - Dermatophytosis of nail [Not Recovered/Not Resolved]
  - Rhinitis allergic [Not Recovered/Not Resolved]
  - Intervertebral disc disorder [Not Recovered/Not Resolved]
  - Paraesthesia [Not Recovered/Not Resolved]
  - Carpal tunnel syndrome [Unknown]
  - Frustration tolerance decreased [Unknown]
  - Metabolic disorder [Not Recovered/Not Resolved]
  - Dry skin [Not Recovered/Not Resolved]
  - Cognitive disorder [Not Recovered/Not Resolved]
  - Sexual dysfunction [Not Recovered/Not Resolved]
  - Osteoarthritis [Unknown]
  - Accident [Unknown]
  - Dyspnoea [Not Recovered/Not Resolved]
  - Anxiety [Unknown]
  - Insomnia [Unknown]
  - Oedema [Not Recovered/Not Resolved]
  - Weight decreased [Unknown]
  - Back injury [Not Recovered/Not Resolved]
  - Hypogonadism [Unknown]
  - Hyperlipidaemia [Unknown]
  - Rhinitis [Not Recovered/Not Resolved]
  - Peripheral venous disease [Not Recovered/Not Resolved]
  - Hyperkeratosis [Not Recovered/Not Resolved]
  - Sleep apnoea syndrome [Not Recovered/Not Resolved]
  - Endocrine disorder [Not Recovered/Not Resolved]
  - Foot deformity [Not Recovered/Not Resolved]
  - Erectile dysfunction [Not Recovered/Not Resolved]
  - Depression [Not Recovered/Not Resolved]
  - Emotional distress [Unknown]
  - Vitamin D deficiency [Not Recovered/Not Resolved]
  - Systolic hypertension [Not Recovered/Not Resolved]
  - Asthma [Unknown]
  - Thermal burn [Unknown]
  - Diabetic autonomic neuropathy [Not Recovered/Not Resolved]
  - Androgen deficiency [Not Recovered/Not Resolved]

NARRATIVE: CASE EVENT DATE: 2003
